FAERS Safety Report 9765099 (Version 1)
Quarter: 2013Q4

REPORT INFORMATION
  Report Type: Spontaneous
  Country: US (occurrence: None)
  Receive Date: 20131216
  Receipt Date: 20131216
  Transmission Date: 20140711
  Serious: Yes (Disabling)
  Sender: FDA-Public Use
  Company Number: None

PATIENT
  Age: 30 Year
  Sex: Female
  Weight: 95.26 kg

DRUGS (1)
  1. SEPTOCAINE [Suspect]
     Indication: HYPOAESTHESIA ORAL
     Dosage: INJECTED INTO BACK OF MOUTH

REACTIONS (3)
  - Vth nerve injury [None]
  - Iatrogenic injury [None]
  - Convulsion [None]
